FAERS Safety Report 11002404 (Version 2)
Quarter: 2015Q2

REPORT INFORMATION
  Report Type: Spontaneous
  Country: US (occurrence: US)
  Receive Date: 20150408
  Receipt Date: 20150508
  Transmission Date: 20150821
  Serious: Yes (Death, Other)
  Sender: FDA-Public Use
  Company Number: US-GLAXOSMITHKLINE-US2015GSK046684

PATIENT
  Sex: Female
  Weight: 50.98 kg

DRUGS (1)
  1. PROMACTA [Suspect]
     Active Substance: ELTROMBOPAG OLAMINE
     Indication: IMMUNE THROMBOCYTOPENIC PURPURA
     Dosage: 25 MG, EVERY OTHER DAY
     Route: 048
     Dates: start: 20130918

REACTIONS (2)
  - Lung cancer metastatic [Fatal]
  - Metastases to central nervous system [Fatal]
